FAERS Safety Report 5493598-6 (Version None)
Quarter: 2007Q4

REPORT INFORMATION
  Report Type: 
  Country: None (occurrence: None)
  Receive Date: 20071023
  Receipt Date: 20071019
  Transmission Date: 20080405
  Serious: Yes (Other)
  Sender: FDA-Public Use
  Company Number: GB-JNJFOC-20060704369

PATIENT
  Age: 6 Year
  Sex: Male
  Weight: 22 kg

DRUGS (5)
  1. CONCERTA [Suspect]
     Route: 048
  2. CONCERTA [Suspect]
     Indication: ATTENTION DEFICIT/HYPERACTIVITY DISORDER
     Route: 048
  3. RISPERDAL [Suspect]
     Indication: AGGRESSION
  4. RISPERDAL [Suspect]
     Indication: ATTENTION DEFICIT/HYPERACTIVITY DISORDER
  5. MELATONIN [Concomitant]

REACTIONS (11)
  - AGGRESSION [None]
  - CRYING [None]
  - DYSKINESIA [None]
  - DYSTONIA [None]
  - FATIGUE [None]
  - HEADACHE [None]
  - MUSCLE SPASTICITY [None]
  - PSYCHOMOTOR HYPERACTIVITY [None]
  - SWOLLEN TONGUE [None]
  - TIC [None]
  - VOMITING [None]
